FAERS Safety Report 8694929 (Version 2)
Quarter: 2012Q4

REPORT INFORMATION
  Report Type: 
  Country: US (occurrence: US)
  Receive Date: 20120731
  Receipt Date: 20120918
  Transmission Date: 20130627
  Serious: No
  Sender: FDA-Public Use
  Company Number: US-ASTRAZENECA-2012SE47937

PATIENT
  Age: 74 Year
  Sex: Female
  Weight: 67.1 kg

DRUGS (3)
  1. SYMBICORT PMDI [Suspect]
     Dosage: 80 /4.5 MCG,  2 PUFFS TWO TIMES A DAY
     Route: 055
  2. VENTOLIN [Concomitant]
  3. CARDIOVEL [Concomitant]
     Indication: CARDIAC DISORDER

REACTIONS (1)
  - Visual impairment [Unknown]
